FAERS Safety Report 4439308-2 (Version None)
Quarter: 2004Q3

REPORT INFORMATION
  Report Type: 
  Country: None (occurrence: None)
  Receive Date: 20040901
  Receipt Date: 20040802
  Transmission Date: 20050211
  Serious: Yes (Disabling)
  Sender: FDA-Public Use
  Company Number: GB-MERCK-0408GBR00022

PATIENT
  Sex: Female

DRUGS (2)
  1. FOSAMAX [Suspect]
     Indication: OSTEOPOROSIS
     Route: 048
     Dates: start: 20040731, end: 20040731
  2. IBUPROFEN [Concomitant]
     Indication: PAIN
     Route: 065
     Dates: start: 20040420

REACTIONS (2)
  - DYSPEPSIA [None]
  - TINNITUS [None]
